FAERS Safety Report 13466204 (Version 6)
Quarter: 2018Q4

REPORT INFORMATION
  Report Type: Report from Study
  Country: CA (occurrence: CA)
  Receive Date: 20170421
  Receipt Date: 20181203
  Transmission Date: 20190204
  Serious: Yes (Other)
  Sender: FDA-Public Use
  Company Number: CA-UCBSA-2017008610

PATIENT
  Age: 39 Year
  Sex: Female

DRUGS (9)
  1. CELECOXIB. [Concomitant]
     Active Substance: CELECOXIB
     Indication: PRODUCT USED FOR UNKNOWN INDICATION
     Dosage: UNK
  2. CERTOLIZUMAB PEGOL ASP [Suspect]
     Active Substance: CERTOLIZUMAB PEGOL
     Indication: ANKYLOSING SPONDYLITIS
     Dosage: 400 MG, EV 2 WEEKS(QOW) X 3
     Route: 058
     Dates: start: 20170216, end: 20170316
  3. CERTOLIZUMAB PEGOL ASP [Suspect]
     Active Substance: CERTOLIZUMAB PEGOL
     Dosage: 200 MG, EV 2 WEEKS(QOW)
     Route: 058
     Dates: start: 2017, end: 2017
  4. CELECOXIB. [Concomitant]
     Active Substance: CELECOXIB
     Dosage: UNK, INCREASED
     Route: 048
  5. CLONAZEPAM. [Concomitant]
     Active Substance: CLONAZEPAM
     Indication: PRODUCT USED FOR UNKNOWN INDICATION
  6. MACROBID [Concomitant]
     Active Substance: NITROFURANTOIN\NITROFURANTOIN MONOHYDRATE
     Indication: URINARY TRACT INFECTION
  7. CERTOLIZUMAB PEGOL ASP [Suspect]
     Active Substance: CERTOLIZUMAB PEGOL
     Dosage: 200 MG, EV 2 WEEKS(QOW)
     Route: 058
     Dates: start: 20170330, end: 20170330
  8. IRON [Concomitant]
     Active Substance: IRON
     Indication: BLOOD IRON DECREASED
  9. SULFATRIM [Concomitant]
     Active Substance: SULFAMETHOXAZOLE\TRIMETHOPRIM
     Indication: URINARY TRACT INFECTION
     Dosage: 1 DF, 2X/DAY (BID)

REACTIONS (15)
  - Fall [Unknown]
  - Hypoaesthesia [Recovering/Resolving]
  - Rash [Unknown]
  - Stress [Not Recovered/Not Resolved]
  - Skin plaque [Unknown]
  - Sunburn [Unknown]
  - Urinary tract infection [Unknown]
  - Paraesthesia [Recovered/Resolved]
  - Hypersomnia [Unknown]
  - Back pain [Unknown]
  - Fatigue [Not Recovered/Not Resolved]
  - Decreased activity [Unknown]
  - Balance disorder [Unknown]
  - Muscular weakness [Unknown]
  - Rash generalised [Unknown]

NARRATIVE: CASE EVENT DATE: 2017
